FAERS Safety Report 7329912 (Version 11)
Quarter: 2014Q1

REPORT INFORMATION
  Report Type: Report from Study
  Country: CA (occurrence: CA)
  Receive Date: 20100324
  Receipt Date: 20140106
  Transmission Date: 20141002
  Serious: Yes (Hospitalization, Other)
  Sender: FDA-Public Use
  Company Number: PHHY2009CA31242

PATIENT
  Sex: Male

DRUGS (7)
  1. SANDOSTATIN LAR [Suspect]
     Indication: NEUROENDOCRINE TUMOUR
     Dosage: 30 MG, EVERY 4 WEEKS
     Route: 030
     Dates: start: 20090706
  2. SANDOSTATIN LAR [Suspect]
     Dosage: 30 MG, QMO
     Route: 030
  3. SANDOSTATIN LAR [Suspect]
     Dosage: 30 MG, EVERY 4 WEEKS
     Route: 030
  4. IRON [Concomitant]
     Route: 041
  5. METFORMIN [Concomitant]
  6. ANTIBIOTICS [Concomitant]
  7. RADIATION THERAPY [Concomitant]

REACTIONS (22)
  - Dyspnoea [Unknown]
  - Weight decreased [Recovering/Resolving]
  - Tumour compression [Unknown]
  - Nerve compression [Unknown]
  - Pain [Not Recovered/Not Resolved]
  - Restlessness [Unknown]
  - Hyperglycaemia [Recovering/Resolving]
  - Sinusitis [Unknown]
  - Flushing [Not Recovered/Not Resolved]
  - Hypohidrosis [Unknown]
  - Arthritis [Unknown]
  - Arthralgia [Unknown]
  - Stress [Unknown]
  - Blood pressure increased [Unknown]
  - Dysgeusia [Unknown]
  - Agitation [Unknown]
  - Neck pain [Unknown]
  - Nausea [Unknown]
  - Heart rate decreased [Unknown]
  - Abdominal pain upper [Unknown]
  - Decreased appetite [Unknown]
  - Sinus headache [Recovering/Resolving]
